FAERS Safety Report 8852997 (Version 4)
Quarter: 2012Q4

REPORT INFORMATION
  Report Type: 
  Country: JP (occurrence: JP)
  Receive Date: 20121022
  Receipt Date: 20121118
  Transmission Date: 20130627
  Serious: Yes (Hospitalization)
  Sender: FDA-Public Use
  Company Number: JP-MERCK-1210JPN006584

PATIENT
  Age: 7 None
  Sex: Male

DRUGS (2)
  1. DEXAMETHASONE [Suspect]
     Indication: PROSTATE CANCER METASTATIC
     Dosage: 1 mg, qd
     Route: 048
     Dates: start: 2010
  2. TEGAFUR\URACIL [Suspect]
     Indication: PROSTATE CANCER METASTATIC
     Dosage: 2 g, qd
     Route: 048
     Dates: start: 2010

REACTIONS (12)
  - Cytomegalovirus oesophagitis [Recovering/Resolving]
  - Immunosuppression [Unknown]
  - Blood pressure systolic decreased [None]
  - Malaise [None]
  - Renal failure acute [None]
  - Dehydration [None]
  - Anaemia [None]
  - Dysphagia [None]
  - Small intestine ulcer [None]
  - Jejunal ulcer [None]
  - Ileal ulcer [None]
  - Enterocolitis [None]
